FAERS Safety Report 11547038 (Version 2)
Quarter: 2015Q4

REPORT INFORMATION
  Report Type: Report from Study
  Country: AU (occurrence: AU)
  Receive Date: 20150924
  Receipt Date: 20151103
  Transmission Date: 20160304
  Serious: Yes (Other)
  Sender: FDA-Public Use
  Company Number: AU-ABBVIE-15K-008-1464422-00

PATIENT
  Age: 74 Year
  Sex: Female

DRUGS (1)
  1. HUMIRA [Suspect]
     Active Substance: ADALIMUMAB
     Indication: ANKYLOSING SPONDYLITIS
     Route: 058

REACTIONS (13)
  - Mobility decreased [Recovering/Resolving]
  - Joint stiffness [Recovering/Resolving]
  - Joint injury [Recovered/Resolved]
  - Systemic lupus erythematosus [Recovering/Resolving]
  - Humerus fracture [Recovered/Resolved]
  - Cerebral haemorrhage [Recovered/Resolved]
  - Activities of daily living impaired [Recovering/Resolving]
  - Joint range of motion decreased [Recovering/Resolving]
  - Gait disturbance [Recovering/Resolving]
  - Fatigue [Recovering/Resolving]
  - Fall [Recovering/Resolving]
  - Uveitis [Recovered/Resolved]
  - Irritability [Recovering/Resolving]

NARRATIVE: CASE EVENT DATE: 201508
